FAERS Safety Report 14360841 (Version 1)
Quarter: 2018Q1

REPORT INFORMATION
  Report Type: Spontaneous
  Country: US (occurrence: US)
  Receive Date: 20180107
  Receipt Date: 20180107
  Transmission Date: 20180509
  Serious: No
  Sender: FDA-Public Use
  Company Number: US-ELI_LILLY_AND_COMPANY-US201801001728

PATIENT
  Sex: Female

DRUGS (6)
  1. HUMALOG [Suspect]
     Active Substance: INSULIN LISPRO
     Dosage: 26 U, DAILY
     Route: 065
     Dates: start: 201703
  2. HUMALOG [Suspect]
     Active Substance: INSULIN LISPRO
     Dosage: 39 U, EACH EVENING
     Route: 065
     Dates: start: 201703
  3. HUMALOG [Suspect]
     Active Substance: INSULIN LISPRO
     Dosage: 26 U, DAILY
     Route: 065
     Dates: start: 201703
  4. HUMALOG [Suspect]
     Active Substance: INSULIN LISPRO
     Indication: TYPE 1 DIABETES MELLITUS
     Dosage: 36 U, EACH MORNING
     Route: 065
     Dates: start: 201703
  5. HUMALOG [Suspect]
     Active Substance: INSULIN LISPRO
     Dosage: 39 U, EACH EVENING
     Route: 065
     Dates: start: 201703
  6. HUMALOG [Suspect]
     Active Substance: INSULIN LISPRO
     Dosage: 36 U, EACH MORNING
     Route: 065

REACTIONS (2)
  - Induration [Unknown]
  - Pain in extremity [Unknown]
